FAERS Safety Report 17655006 (Version 2)
Quarter: 2020Q2

REPORT INFORMATION
  Report Type: Spontaneous
  Country: PL (occurrence: PL)
  Receive Date: 20200410
  Receipt Date: 20200415
  Transmission Date: 20200713
  Serious: No
  Sender: FDA-Public Use
  Company Number: PL-PFIZER INC-2020138702

PATIENT
  Age: 61 Year
  Sex: Male

DRUGS (4)
  1. MORPHINE [Suspect]
     Active Substance: MORPHINE
     Indication: PAIN IN EXTREMITY
     Dosage: 0.02 G, 4X/DAY
     Dates: start: 201603
  2. GABAPENTIN. [Suspect]
     Active Substance: GABAPENTIN
     Indication: PAIN IN EXTREMITY
     Dosage: 0.3 G, 3X/DAY
     Dates: start: 201603, end: 2016
  3. KETOPROFEN. [Suspect]
     Active Substance: KETOPROFEN
     Indication: PAIN IN EXTREMITY
     Dosage: 100 MG, UNK (2 TIMES)
     Dates: start: 201603
  4. FENTANYL. [Suspect]
     Active Substance: FENTANYL
     Indication: PAIN IN EXTREMITY
     Dosage: UNK, UNK (50 MICROG/ H EVERY 3 DAYS, INCREASED EVERY 6-9 DAYS)
     Dates: start: 201603

REACTIONS (4)
  - Quality of life decreased [Unknown]
  - Confusional state [Recovered/Resolved]
  - Constipation [Unknown]
  - Decreased appetite [Unknown]

NARRATIVE: CASE EVENT DATE: 2016
